FAERS Safety Report 5767965-7 (Version None)
Quarter: 2008Q2

REPORT INFORMATION
  Report Type: 
  Country: None (occurrence: None)
  Receive Date: 20080612
  Receipt Date: 20080531
  Transmission Date: 20081010
  Serious: Yes (Other)
  Sender: FDA-Public Use
  Company Number: US-PFIZER INC-2008047197

PATIENT
  Sex: Male
  Weight: 86.363 kg

DRUGS (1)
  1. CHANTIX [Suspect]
     Indication: SMOKING CESSATION THERAPY
     Route: 048
     Dates: start: 20080501, end: 20080528

REACTIONS (9)
  - ABNORMAL BEHAVIOUR [None]
  - CRYING [None]
  - DEPRESSION [None]
  - DIZZINESS [None]
  - EAR DISCOMFORT [None]
  - HYPERHIDROSIS [None]
  - LETHARGY [None]
  - PALLOR [None]
  - SUICIDAL IDEATION [None]
